FAERS Safety Report 11798848 (Version 1)
Quarter: 2015Q4

REPORT INFORMATION
  Report Type: Report from Study
  Country: US (occurrence: US)
  Receive Date: 20151203
  Receipt Date: 20151203
  Transmission Date: 20160305
  Serious: No
  Sender: FDA-Public Use
  Company Number: US-AMGEN-USASL2015107410

PATIENT
  Age: 74 Year
  Sex: Female

DRUGS (1)
  1. REPATHA [Suspect]
     Active Substance: EVOLOCUMAB
     Indication: HYPERCHOLESTEROLAEMIA
     Dosage: 140 MG, Q2WK
     Route: 065

REACTIONS (24)
  - Rhinorrhoea [Recovering/Resolving]
  - Lip swelling [Recovering/Resolving]
  - Dizziness [Recovering/Resolving]
  - Myalgia [Recovering/Resolving]
  - Diarrhoea [Recovering/Resolving]
  - Musculoskeletal stiffness [Recovering/Resolving]
  - Pain in jaw [Recovering/Resolving]
  - Fatigue [Unknown]
  - Asthenia [Recovering/Resolving]
  - Weight decreased [Unknown]
  - Muscle rigidity [Recovering/Resolving]
  - Limb discomfort [Unknown]
  - Sneezing [Unknown]
  - Memory impairment [Unknown]
  - Somnolence [Recovering/Resolving]
  - Cough [Recovering/Resolving]
  - Confusional state [Recovering/Resolving]
  - Back pain [Recovering/Resolving]
  - Neck pain [Unknown]
  - Feeling abnormal [Recovering/Resolving]
  - Visual impairment [Recovering/Resolving]
  - Dyspnoea [Recovering/Resolving]
  - Vomiting [Recovering/Resolving]
  - Swelling [Recovering/Resolving]

NARRATIVE: CASE EVENT DATE: 201510
